FAERS Safety Report 4662426-0 (Version None)
Quarter: 2005Q2

REPORT INFORMATION
  Report Type: 
  Country: None (occurrence: None)
  Receive Date: 20050512
  Receipt Date: 20050502
  Transmission Date: 20051028
  Serious: Yes (Hospitalization, Disabling)
  Sender: FDA-Public Use
  Company Number: 2005053912

PATIENT
  Age: 86 Year
  Sex: Female

DRUGS (6)
  1. GENOTROPIN [Suspect]
     Dosage: 0.3 MG, 0.3 MG EVERY OTHER DAY, SUBCUTANEOUS
     Route: 058
     Dates: start: 19990101
  2. METOPROLOL TARTRATE [Concomitant]
  3. CLOPIDOGREL BISULFATE [Concomitant]
  4. PRAVASTATIN [Concomitant]
  5. NADROPARIN (NADROPARIN) [Concomitant]
  6. ASPIRIN [Concomitant]

REACTIONS (6)
  - BLOOD GLUCOSE INCREASED [None]
  - CAROTID ARTERY STENOSIS [None]
  - CEREBRAL INFARCTION [None]
  - HEMIPLEGIA [None]
  - URINARY TRACT INFECTION [None]
  - VIITH NERVE PARALYSIS [None]
